FAERS Safety Report 7656034-7 (Version None)
Quarter: 2011Q3

REPORT INFORMATION
  Report Type: 
  Country: None (occurrence: None)
  Receive Date: 20110804
  Receipt Date: 20110722
  Transmission Date: 20111222
  Serious: Yes (Other)
  Sender: FDA-Public Use
  Company Number: US-ELI_LILLY_AND_COMPANY-US201107006608

PATIENT
  Sex: Female

DRUGS (2)
  1. ZYPREXA [Suspect]
     Dosage: UNK UNK, UNKNOWN
     Route: 065
  2. DEPAKOTE [Concomitant]
     Dosage: UNK
     Route: 065

REACTIONS (2)
  - DIABETES MELLITUS [None]
  - WEIGHT INCREASED [None]
